FAERS Safety Report 8584235 (Version 4)
Quarter: 2013Q3

REPORT INFORMATION
  Report Type: Spontaneous
  Country: JP (occurrence: JP)
  Receive Date: 20120529
  Receipt Date: 20130723
  Transmission Date: 20140515
  Serious: Yes (Hospitalization)
  Sender: FDA-Public Use
  Company Number: JP-ELI_LILLY_AND_COMPANY-JP201205006689

PATIENT
  Age: 14 Year
  Sex: Female

DRUGS (1)
  1. HUMATROPE [Suspect]
     Indication: BODY HEIGHT BELOW NORMAL
     Dosage: UNK
     Route: 058
     Dates: start: 2001

REACTIONS (3)
  - Renovascular hypertension [Recovering/Resolving]
  - Hydrocephalus [Unknown]
  - Posterior reversible encephalopathy syndrome [Unknown]
